FAERS Safety Report 18789949 (Version 1)
Quarter: 2021Q1

REPORT INFORMATION
  Report Type: Report from Study
  Country: CA (occurrence: CA)
  Receive Date: 20210126
  Receipt Date: 20210126
  Transmission Date: 20210419
  Serious: Yes (Other)
  Sender: FDA-Public Use
  Company Number: CA-TAKEDA-2020TUS057555

PATIENT
  Age: 67 Year
  Sex: Female
  Weight: 64.7 kg

DRUGS (3)
  1. GAMMAGARD LIQUID [Suspect]
     Active Substance: HUMAN IMMUNOGLOBULIN G
     Indication: PRIMARY IMMUNODEFICIENCY SYNDROME
     Dosage: 6 GRAM, 1/WEEK
     Route: 058
     Dates: start: 20201209
  2. POTASSIUM [Concomitant]
     Active Substance: POTASSIUM
  3. GAMMAGARD LIQUID [Suspect]
     Active Substance: HUMAN IMMUNOGLOBULIN G
     Dosage: 6 GRAM, 1/WEEK
     Route: 058

REACTIONS (6)
  - Back pain [Unknown]
  - Limb mass [Unknown]
  - Headache [Unknown]
  - Loss of control of legs [Unknown]
  - Fatigue [Unknown]
  - Hypertension [Unknown]

NARRATIVE: CASE EVENT DATE: 202012
